FAERS Safety Report 8690987 (Version 2)
Quarter: 2013Q4

REPORT INFORMATION
  Report Type: Spontaneous
  Country: US (occurrence: US)
  Receive Date: 20120730
  Receipt Date: 20131105
  Transmission Date: 20140711
  Serious: Yes (Other)
  Sender: FDA-Public Use
  Company Number: US-009507513-1207USA010747

PATIENT
  Age: 72 Year
  Sex: Female

DRUGS (4)
  1. ZOCOR [Suspect]
     Dosage: 1 DF, UNK
     Route: 048
  2. ATENOLOL [Concomitant]
  3. FUROSEMIDE [Concomitant]
  4. XANAX [Concomitant]

REACTIONS (2)
  - Thrombocytopenia [Unknown]
  - Anti-platelet antibody positive [Unknown]
